FAERS Safety Report 14815305 (Version 19)
Quarter: 2019Q2

REPORT INFORMATION
  Report Type: Spontaneous
  Country: DE (occurrence: DE)
  Receive Date: 20180426
  Receipt Date: 20190403
  Transmission Date: 20190711
  Serious: Yes (Hospitalization)
  Sender: FDA-Public Use
  Company Number: DE-PFIZER INC-2018170838

PATIENT
  Age: 89 Year
  Sex: Female

DRUGS (15)
  1. TORASEMID [Interacting]
     Active Substance: TORSEMIDE
     Dosage: 10 MG, DAILY
     Route: 048
  2. ENOXAPARIN [Concomitant]
     Active Substance: ENOXAPARIN
     Dosage: 4000 IU,QD
     Route: 065
  3. ACETYLSALICYLIC ACID [Concomitant]
     Active Substance: ASPIRIN
     Dosage: 100 MG, QD
     Route: 065
  4. RAMIPRIL. [Suspect]
     Active Substance: RAMIPRIL
     Dosage: UNK UNK, BID (1 IN MORNING AND 0.5 TABLET IN AFTERNOON)
     Route: 048
  5. DOXAZOSIN [Concomitant]
     Active Substance: DOXAZOSIN\DOXAZOSIN MESYLATE
     Dosage: 25 MG, QD
     Route: 065
  6. LEVOTHYROXINE SODIUM. [Concomitant]
     Active Substance: LEVOTHYROXINE SODIUM
     Dosage: 75 UG, QD
     Route: 055
  7. PANTOPRAZOL [PANTOPRAZOLE] [Concomitant]
     Dosage: 40 MG, QD
     Route: 065
  8. SIMVASTATIN. [Concomitant]
     Active Substance: SIMVASTATIN
     Dosage: 20 MG, QD
     Route: 065
  9. URAPIDIL [Interacting]
     Active Substance: URAPIDIL
     Dosage: 60 MG, TWO TIMES A DAY
     Route: 065
  10. AMLODIPINE BESILATE [Interacting]
     Active Substance: AMLODIPINE BESYLATE
     Dosage: 5 MG,QD
     Route: 065
  11. METOPROLOL TARTRATE. [Interacting]
     Active Substance: METOPROLOL TARTRATE
     Dosage: 50 MG, TWO TIMES A DAY
     Route: 048
  12. METAMIZOLE [Concomitant]
     Active Substance: METAMIZOLE
     Dosage: 40 GTT DROPS, UNK
     Route: 065
  13. FENTANYL. [Interacting]
     Active Substance: FENTANYL
     Dosage: 100 UG, PER INHALATION
     Route: 055
  14. PANTOPRAZOLE SODIUM SESQUIHYDRATE [Concomitant]
     Active Substance: PANTOPRAZOLE SODIUM
     Dosage: 40 MG,QD
     Route: 065
  15. LACTULOSE. [Concomitant]
     Active Substance: LACTULOSE
     Dosage: UNK, QD
     Route: 065

REACTIONS (3)
  - Fall [Unknown]
  - Product monitoring error [Unknown]
  - Labelled drug-drug interaction medication error [Unknown]

NARRATIVE: CASE EVENT DATE: 20151004
